FAERS Safety Report 24278730 (Version 1)
Quarter: 2024Q3

REPORT INFORMATION
  Report Type: Spontaneous
  Country: US (occurrence: US)
  Receive Date: 20240903
  Receipt Date: 20240903
  Transmission Date: 20241017
  Serious: No
  Sender: TEVA
  Company Number: US-TEVA-VS-3234607

PATIENT
  Age: 60 Year
  Sex: Male

DRUGS (1)
  1. TEMAZEPAM [Suspect]
     Active Substance: TEMAZEPAM
     Indication: Product used for unknown indication
     Dosage: STRENGTH: 30 MG
     Route: 065

REACTIONS (1)
  - Drug ineffective [Unknown]
